FAERS Safety Report 24245182 (Version 2)
Quarter: 2025Q1

REPORT INFORMATION
  Report Type: Report from Study
  Country: US (occurrence: US)
  Receive Date: 20240823
  Receipt Date: 20250207
  Transmission Date: 20250409
  Serious: No
  Sender: SUNOVION
  Company Number: US-SUMITOMO PHARMA SWITZERLAND GMBH-2024SPA001409

PATIENT

DRUGS (24)
  1. ORGOVYX [Suspect]
     Active Substance: RELUGOLIX
     Indication: Prostate cancer
     Dosage: 360 MG, SINGLE
     Route: 048
     Dates: start: 20240710, end: 20240710
  2. ORGOVYX [Suspect]
     Active Substance: RELUGOLIX
     Dosage: 120 MG, QD
     Route: 048
     Dates: start: 20240711
  3. ALFUZOSIN [Concomitant]
     Active Substance: ALFUZOSIN
     Route: 065
  4. ASPIRIN [Concomitant]
     Active Substance: ASPIRIN
     Route: 065
  5. AZELAIC ACID [Concomitant]
     Active Substance: AZELAIC ACID
     Route: 065
  6. MINERALS\VITAMINS [Concomitant]
     Active Substance: MINERALS\VITAMINS
     Route: 065
  7. COENZYME Q10 [Concomitant]
     Active Substance: DIETARY SUPPLEMENT\UBIDECARENONE
     Route: 065
  8. VITAMIN D3 [Concomitant]
     Active Substance: CHOLECALCIFEROL
     Route: 065
  9. WHEY [Concomitant]
     Active Substance: WHEY
     Route: 065
  10. ESZOPICLONE [Concomitant]
     Active Substance: ESZOPICLONE
     Route: 065
  11. EZETIMIBE [Concomitant]
     Active Substance: EZETIMIBE
     Route: 065
  12. IRON [Concomitant]
     Active Substance: IRON
     Route: 065
  13. ISOREL [Concomitant]
     Route: 065
  14. LISINOPRIL [Concomitant]
     Active Substance: LISINOPRIL
     Route: 065
  15. METRONIDAZOLE [Concomitant]
     Active Substance: METRONIDAZOLE
     Route: 065
  16. MYRBETRIQ [Concomitant]
     Active Substance: MIRABEGRON
     Route: 065
  17. ACETYLCYSTEINE [Concomitant]
     Active Substance: ACETYLCYSTEINE
     Route: 065
  18. OMEGA 3 [Concomitant]
     Active Substance: CAPSAICIN
     Route: 065
  19. QUERCETIN [Concomitant]
     Active Substance: QUERCETIN
     Route: 065
  20. ROSUVASTATIN [Concomitant]
     Active Substance: ROSUVASTATIN
     Route: 065
  21. CYANOCOBALAMIN\DEXPANTHENOL\NIACINAMIDE\PYRIDOXINE HYDROCHLORIDE\RIBOF [Concomitant]
     Active Substance: CYANOCOBALAMIN\DEXPANTHENOL\NIACINAMIDE\PYRIDOXINE HYDROCHLORIDE\RIBOFLAVIN 5^-PHOSPHATE SODIUM\THIA
     Route: 065
  22. SYMTUZA [Concomitant]
     Active Substance: COBICISTAT\DARUNAVIR\EMTRICITABINE\TENOFOVIR ALAFENAMIDE
     Route: 065
  23. TADALAFIL [Concomitant]
     Active Substance: TADALAFIL
     Route: 065
  24. ZINC [Concomitant]
     Active Substance: ZINC
     Route: 065

REACTIONS (2)
  - Hot flush [Unknown]
  - Weight increased [Unknown]
